FAERS Safety Report 9226602 (Version 2)
Quarter: 2013Q2

REPORT INFORMATION
  Report Type: Spontaneous
  Country: US (occurrence: US)
  Receive Date: 20130412
  Receipt Date: 20130501
  Transmission Date: 20140414
  Serious: Yes (Hospitalization)
  Sender: FDA-Public Use
  Company Number: US-BIOGENIDEC-2013BI031813

PATIENT
  Age: 44 Year
  Sex: Male
  Weight: 63 kg

DRUGS (8)
  1. AVONEX [Suspect]
     Indication: MULTIPLE SCLEROSIS
     Route: 030
     Dates: start: 20030301
  2. AVONEX [Suspect]
     Indication: MULTIPLE SCLEROSIS
     Route: 030
     Dates: start: 20030602, end: 20060421
  3. AVONEX [Suspect]
     Indication: MULTIPLE SCLEROSIS
     Route: 030
     Dates: start: 20070102
  4. AVONEX [Suspect]
     Indication: MULTIPLE SCLEROSIS
     Route: 030
     Dates: start: 20070702
  5. IBUPROFEN [Concomitant]
     Route: 048
  6. MULTIPLE VITAMINS [Concomitant]
     Route: 048
  7. VITAMIN D [Concomitant]
     Route: 048
  8. PREDNISONE [Concomitant]
     Route: 048

REACTIONS (2)
  - Influenza [Unknown]
  - Multiple sclerosis relapse [Unknown]
